FAERS Safety Report 7584936-9 (Version None)
Quarter: 2011Q2

REPORT INFORMATION
  Report Type: 
  Country: None (occurrence: None)
  Receive Date: 20110630
  Receipt Date: 20110622
  Transmission Date: 20111010
  Serious: Yes (Other)
  Sender: FDA-Public Use
  Company Number: US-ABBOTT-11P-163-0734712-00

PATIENT
  Age: 71 Year
  Sex: Female
  Weight: 65.83 kg

DRUGS (7)
  1. HUMIRA [Suspect]
     Indication: PSORIATIC ARTHROPATHY
     Route: 058
     Dates: start: 20091201, end: 20101201
  2. GLUCOSAMINE SULFATE [Concomitant]
     Indication: PSORIATIC ARTHROPATHY
     Route: 048
  3. HUMIRA [Suspect]
     Route: 058
     Dates: start: 20101201
  4. LEVOTHYROXINE SODIUM [Concomitant]
     Indication: HYPOTHYROIDISM
     Route: 048
  5. WOMEN'S VITAMIN [Concomitant]
     Indication: CARDIAC DISORDER
     Route: 048
  6. HUMIRA [Suspect]
     Route: 058
     Dates: start: 20071201, end: 20090401
  7. COQ10 [Concomitant]
     Indication: SUPPLEMENTATION THERAPY
     Route: 048

REACTIONS (7)
  - CONVULSION [None]
  - DRUG INEFFECTIVE [None]
  - LOCALISED INFECTION [None]
  - MEMORY IMPAIRMENT [None]
  - CEREBROVASCULAR ACCIDENT [None]
  - PSORIASIS [None]
  - ARTHRITIS [None]
